FAERS Safety Report 8457938-8 (Version None)
Quarter: 2012Q2

REPORT INFORMATION
  Report Type: 
  Country: None (occurrence: None)
  Receive Date: 20120622
  Receipt Date: 20120615
  Transmission Date: 20120825
  Serious: Yes (Death, Other)
  Sender: FDA-Public Use
  Company Number: US-JNJFOC-20120607438

PATIENT

DRUGS (9)
  1. VINCRISTINE [Suspect]
     Indication: DIFFUSE LARGE B-CELL LYMPHOMA
     Dosage: 6-8 CYCLES
     Route: 042
  2. PREDNISONE TAB [Suspect]
     Indication: DIFFUSE LARGE B-CELL LYMPHOMA
     Dosage: ON DAYS 1-5
     Route: 048
  3. ANTI-EMETICS [Concomitant]
     Route: 065
  4. DAPSONE [Concomitant]
     Indication: ANTIFUNGAL PROPHYLAXIS
     Route: 065
  5. GRANULOCYTE MACROPHAGE COLONY STIM FACTOR [Suspect]
     Indication: DIFFUSE LARGE B-CELL LYMPHOMA
     Dosage: DAYS 3-10
     Route: 058
  6. CYCLOPHOSPHAMIDE [Suspect]
     Indication: DIFFUSE LARGE B-CELL LYMPHOMA
     Dosage: 6-8 CYCLES
     Route: 042
  7. RITUXIMAB [Suspect]
     Indication: DIFFUSE LARGE B-CELL LYMPHOMA
     Dosage: 6-8 CYCLES
     Route: 042
  8. DOXORUBICIN HCL [Suspect]
     Indication: DIFFUSE LARGE B-CELL LYMPHOMA
     Dosage: 6-8 CYCLES
     Route: 042
  9. TRIMETHOPRIM + SULFAMETHOXAZOLE [Concomitant]
     Indication: ANTIFUNGAL PROPHYLAXIS
     Route: 065

REACTIONS (21)
  - DIFFUSE LARGE B-CELL LYMPHOMA [None]
  - HAEMOGLOBIN ABNORMAL [None]
  - HYPERGLYCAEMIA [None]
  - VOMITING [None]
  - FEBRILE NEUTROPENIA [None]
  - PAIN [None]
  - NAUSEA [None]
  - DYSPNOEA [None]
  - PANCYTOPENIA [None]
  - PERFORMANCE STATUS DECREASED [None]
  - INFECTION [None]
  - THROMBOCYTOPENIA [None]
  - HAEMOGLOBIN [None]
  - ABDOMINAL PAIN UPPER [None]
  - HALLUCINATION [None]
  - NEUTROPENIC INFECTION [None]
  - NEUTROPENIA [None]
  - LEUKOPENIA [None]
  - CARDIOVASCULAR DISORDER [None]
  - TOXICITY TO VARIOUS AGENTS [None]
  - FATIGUE [None]
